FAERS Safety Report 16691235 (Version 1)
Quarter: 2019Q3

REPORT INFORMATION
  Report Type: Spontaneous
  Country: US (occurrence: US)
  Receive Date: 20190812
  Receipt Date: 20190812
  Transmission Date: 20191004
  Serious: No
  Sender: FDA-Public Use
  Company Number: US-APOTEX-2019AP019030

PATIENT
  Sex: Male

DRUGS (8)
  1. HYDROXYCHLOROQUINE [Suspect]
     Active Substance: HYDROXYCHLOROQUINE
     Indication: BABESIOSIS
     Dosage: 200 MG, BID
     Route: 048
     Dates: start: 201210, end: 201308
  2. PROGUANIL [Concomitant]
     Active Substance: PROGUANIL
     Indication: FLUORESCENT IN SITU HYBRIDISATION
     Dosage: 100 MG, BID
     Route: 048
     Dates: start: 201210
  3. ATOVAQUONE. [Concomitant]
     Active Substance: ATOVAQUONE
     Indication: FLUORESCENT IN SITU HYBRIDISATION
     Dosage: 250 MG, UNK
     Route: 065
     Dates: start: 201210
  4. ATOVAQUONE/PROGUANIL [Concomitant]
     Active Substance: ATOVAQUONE\PROGUANIL
     Indication: PRODUCT USED FOR UNKNOWN INDICATION
     Dosage: UNK
     Route: 065
  5. AMOXICILLIN. [Concomitant]
     Active Substance: AMOXICILLIN
     Indication: BABESIOSIS
     Dosage: UNK
     Route: 065
  6. AMITRIPTYLINE [Suspect]
     Active Substance: AMITRIPTYLINE
     Indication: BABESIOSIS
     Dosage: 20 MG, Q.H.S.
     Route: 065
     Dates: start: 201210, end: 201308
  7. METRONIDAZOLE. [Concomitant]
     Active Substance: METRONIDAZOLE
     Indication: BABESIOSIS
     Dosage: 500 MG, BID, FOR TWO CONSECUTIVE DAYS PER WEEK
     Route: 048
  8. CLARITHROMYCIN. [Suspect]
     Active Substance: CLARITHROMYCIN
     Indication: BABESIOSIS
     Dosage: 1500 MG, BID
     Route: 048
     Dates: start: 201210, end: 201308

REACTIONS (1)
  - Treatment noncompliance [Unknown]

NARRATIVE: CASE EVENT DATE: 201308
